FAERS Safety Report 9707745 (Version 2)
Quarter: 2013Q4

REPORT INFORMATION
  Report Type: Spontaneous
  Country: TR (occurrence: TR)
  Receive Date: 20131125
  Receipt Date: 20131125
  Transmission Date: 20140711
  Serious: Yes (Life-Threatening, Other)
  Sender: FDA-Public Use
  Company Number: TR-PFIZER INC-2013323909

PATIENT
  Age: 82 Year
  Sex: Male

DRUGS (1)
  1. METHYLPREDNISOLONE ACETATE [Suspect]
     Indication: PEMPHIGOID
     Dosage: 4 MG, ALTERNATE DAY

REACTIONS (2)
  - Strongyloidiasis [Recovering/Resolving]
  - Loeffler^s syndrome [Recovering/Resolving]
